FAERS Safety Report 17895504 (Version 1)
Quarter: 2020Q2

REPORT INFORMATION
  Report Type: Spontaneous
  Country: NO (occurrence: NO)
  Receive Date: 20200615
  Receipt Date: 20200615
  Transmission Date: 20200714
  Serious: Yes (Life-Threatening)
  Sender: FDA-Public Use
  Company Number: NO-PFIZER INC-2020230465

PATIENT
  Age: 82 Year
  Sex: Male

DRUGS (6)
  1. KETAMINE HCL [Suspect]
     Active Substance: KETAMINE HYDROCHLORIDE
     Indication: ANAESTHESIA PROCEDURE
     Dosage: 70 MG
     Route: 042
     Dates: start: 20200511, end: 20200511
  2. ROCURONIUM BROMIDE. [Suspect]
     Active Substance: ROCURONIUM BROMIDE
     Indication: ANAESTHESIA PROCEDURE
     Dosage: 50 MG
     Dates: start: 20200511, end: 20200511
  3. LIDOCAINE. [Suspect]
     Active Substance: LIDOCAINE
     Indication: ANAESTHESIA PROCEDURE
     Dosage: 100 MG
     Route: 042
     Dates: start: 20200511, end: 20200511
  4. FENTANYL. [Suspect]
     Active Substance: FENTANYL
     Indication: ANAESTHESIA PROCEDURE
     Dosage: 100 UG
     Route: 042
     Dates: start: 20200511, end: 20200511
  5. CHLORHEXIDINE [Suspect]
     Active Substance: CHLORHEXIDINE
     Dates: start: 20200511, end: 20200511
  6. PROPOFOL. [Suspect]
     Active Substance: PROPOFOL
     Indication: ANAESTHESIA PROCEDURE
     Dosage: 120 MG
     Route: 042
     Dates: start: 20200511, end: 20200511

REACTIONS (1)
  - Anaphylactic shock [Recovered/Resolved]

NARRATIVE: CASE EVENT DATE: 20200511
